FAERS Safety Report 9360731 (Version 1)
Quarter: 2013Q2

REPORT INFORMATION
  Report Type: Spontaneous
  Country: GR (occurrence: GR)
  Receive Date: 20130621
  Receipt Date: 20130621
  Transmission Date: 20140414
  Serious: Yes (Other)
  Sender: FDA-Public Use
  Company Number: GR-AMGEN-GRCSP2013043632

PATIENT
  Age: 75 Year
  Sex: Female

DRUGS (1)
  1. PROLIA [Suspect]
     Indication: OSTEOPOROSIS
     Dosage: 60 MG, UNK
     Dates: start: 2011, end: 2013

REACTIONS (5)
  - Major depression [Unknown]
  - Dyspnoea [Recovered/Resolved]
  - White blood cell count decreased [Unknown]
  - Blood cholesterol increased [Unknown]
  - Asthma [Unknown]
